FAERS Safety Report 18681685 (Version 8)
Quarter: 2022Q3

REPORT INFORMATION
  Report Type: Report from Study
  Country: BE (occurrence: BE)
  Receive Date: 20201229
  Receipt Date: 20220831
  Transmission Date: 20221026
  Serious: Yes (Hospitalization)
  Sender: FDA-Public Use
  Company Number: BE-KOREA IPSEN PHARMA-2020-26208

PATIENT
  Age: 69 Year
  Sex: Male
  Weight: 74 kg

DRUGS (17)
  1. CABOZANTINIB [Suspect]
     Active Substance: CABOZANTINIB
     Indication: Renal cell carcinoma
     Dosage: 60 MG, QD
     Route: 048
     Dates: start: 20201015, end: 2020
  2. CABOZANTINIB [Suspect]
     Active Substance: CABOZANTINIB
     Dosage: 40 MG, QD
     Route: 048
     Dates: start: 20201120, end: 20201215
  3. CABOZANTINIB [Suspect]
     Active Substance: CABOZANTINIB
     Dosage: 20 MG, QD
     Route: 048
     Dates: start: 20210120, end: 20210331
  4. CABOZANTINIB [Suspect]
     Active Substance: CABOZANTINIB
     Dosage: 20 MG, QD
     Route: 048
     Dates: start: 20210517
  5. ASPIRIN [Concomitant]
     Active Substance: ASPIRIN
     Dosage: 80 MG, QD
     Route: 048
  6. EZETIMIBE\SIMVASTATIN [Concomitant]
     Active Substance: EZETIMIBE\SIMVASTATIN
     Dosage: 10/40 MG, QD
     Route: 048
  7. GLICLAZIDE [Concomitant]
     Active Substance: GLICLAZIDE
     Dosage: 30 MG, QD
     Route: 048
  8. AMLODIPINE BESYLATE\INDAPAMIDE\PERINDOPRIL ARGININE [Concomitant]
     Active Substance: AMLODIPINE BESYLATE\INDAPAMIDE\PERINDOPRIL ARGININE
     Dosage: 10 MG, QD
     Route: 048
  9. ELIQUIS [Concomitant]
     Active Substance: APIXABAN
     Dosage: 2.5 MG, Q2D
     Route: 048
  10. NEBIVOLOL [Concomitant]
     Active Substance: NEBIVOLOL
     Dosage: 5 MG, QD
     Route: 048
  11. PANTOMED [Concomitant]
     Dosage: 20 MG, QD
     Route: 048
  12. FEBUXOSTAT [Concomitant]
     Active Substance: FEBUXOSTAT
     Dosage: 80 MG, QD
     Route: 048
  13. LEVOTHYROXINE [Concomitant]
     Active Substance: LEVOTHYROXINE
     Dosage: 25 MG, Q2D
     Route: 048
  14. TERAZOSIN HYDROCHLORIDE [Concomitant]
     Active Substance: TERAZOSIN HYDROCHLORIDE
     Dosage: 1 MG, Q2D
     Route: 048
  15. ACETAMINOPHEN [Concomitant]
     Active Substance: ACETAMINOPHEN
     Dosage: 1000 MG, Q4D
     Route: 048
  16. LOPERAMIDE [Concomitant]
     Active Substance: LOPERAMIDE
     Dosage: 2 MG, AS NEEDED
     Route: 048
  17. FLUTICASONE FUROATE\VILANTEROL TRIFENATATE [Concomitant]
     Active Substance: FLUTICASONE FUROATE\VILANTEROL TRIFENATATE
     Dosage: 92/22 MICROGRAMS, QD

REACTIONS (3)
  - Scrotal abscess [Recovered/Resolved]
  - Peripheral artery aneurysm [Recovered/Resolved]
  - Scrotal abscess [Recovered/Resolved]

NARRATIVE: CASE EVENT DATE: 20201218
